FAERS Safety Report 6385278-X (Version None)
Quarter: 2009Q4

REPORT INFORMATION
  Report Type: 
  Country: None (occurrence: None)
  Receive Date: 20091002
  Receipt Date: 20080902
  Transmission Date: 20100525
  Serious: No
  Sender: FDA-Public Use
  Company Number: US-ASTRAZENECA-2008UW16560

PATIENT
  Age: 67 Year
  Sex: Female
  Weight: 70.3 kg

DRUGS (3)
  1. ARIMIDEX [Suspect]
     Indication: BREAST CANCER FEMALE
     Route: 048
     Dates: start: 20080601
  2. CALCIUM [Concomitant]
  3. ASPIRIN [Concomitant]

REACTIONS (4)
  - COUGH [None]
  - DRY THROAT [None]
  - OROPHARYNGEAL PAIN [None]
  - SINUS OPERATION [None]
